FAERS Safety Report 5648061-6 (Version None)
Quarter: 2008Q1

REPORT INFORMATION
  Report Type: 
  Country: None (occurrence: None)
  Receive Date: 20080229
  Receipt Date: 20080229
  Transmission Date: 20080703
  Serious: Yes (Hospitalization)
  Sender: FDA-Public Use
  Company Number: None

PATIENT
  Age: 63 Year
  Sex: Male
  Weight: 109 kg

DRUGS (2)
  1. NAPROXEN [Suspect]
     Indication: PAIN
     Dosage: 500MG EVERY DAY PO
     Route: 048
     Dates: start: 20071015, end: 20080115
  2. ETODOLAC [Suspect]
     Dosage: 200MG BID PO
     Route: 048
     Dates: start: 20070730, end: 20071015

REACTIONS (4)
  - ANAEMIA [None]
  - DIARRHOEA [None]
  - GASTRIC HAEMORRHAGE [None]
  - PRESYNCOPE [None]
